FAERS Safety Report 7065705-5 (Version None)
Quarter: 2010Q4

REPORT INFORMATION
  Report Type: 
  Country: None (occurrence: None)
  Receive Date: 20101027
  Receipt Date: 20100908
  Transmission Date: 20110411
  Serious: Yes (Hospitalization, Other)
  Sender: FDA-Public Use
  Company Number: US-BAXTER-2010BH023270

PATIENT
  Age: 61 Year
  Sex: Female

DRUGS (1)
  1. DURAMORPH PF [Suspect]
     Indication: PAIN
     Route: 037

REACTIONS (2)
  - CELLULITIS [None]
  - OEDEMA [None]
